FAERS Safety Report 5912500-3 (Version None)
Quarter: 2008Q4

REPORT INFORMATION
  Report Type: 
  Country: None (occurrence: None)
  Receive Date: 20081007
  Receipt Date: 20081007
  Transmission Date: 20090506
  Serious: Yes (Life-Threatening, Hospitalization, Other)
  Sender: FDA-Public Use
  Company Number: None

PATIENT
  Age: 45 Year
  Sex: Female
  Weight: 74.8435 kg

DRUGS (2)
  1. BACTRIM [Suspect]
     Indication: KIDNEY INFECTION
     Dates: start: 20030214, end: 20030215
  2. BACTRIM [Suspect]
     Indication: NEPHROLITHIASIS
     Dates: start: 20030214, end: 20030215

REACTIONS (2)
  - SKIN GRAFT [None]
  - STEVENS-JOHNSON SYNDROME [None]
